FAERS Safety Report 17668274 (Version 3)
Quarter: 2025Q3

REPORT INFORMATION
  Report Type: Report from Study
  Country: EU (occurrence: EU)
  Receive Date: 20200414
  Receipt Date: 20250701
  Transmission Date: 20251021
  Serious: Yes (Other)
  Sender: AUROBINDO
  Company Number: EU-SUN PHARMACEUTICAL INDUSTRIES LTD-2020R1-242641

PATIENT
  Age: 52 Year
  Sex: Male

DRUGS (10)
  1. MOXIFLOXACIN [Suspect]
     Active Substance: MOXIFLOXACIN
     Indication: Postoperative care
     Route: 065
     Dates: start: 2012
  2. MITOMYCIN C [Suspect]
     Active Substance: MITOMYCIN
     Indication: Intraoperative care
     Route: 065
  3. PREDNISOLONE [Suspect]
     Active Substance: PREDNISOLONE
     Indication: Postoperative care
     Dosage: 1 DOSAGE FORM, EVERY WEEK, (10 MG/ML, WEEKLY)
     Route: 065
  4. PREDNISOLONE [Suspect]
     Active Substance: PREDNISOLONE
     Dosage: 1 DOSAGE FORM, EVERY FOUR HOUR, ( EVERY FOUR HOUR), (10 MG/ML, Q4H)
     Route: 065
     Dates: start: 2012
  5. PREDNISOLONE [Suspect]
     Active Substance: PREDNISOLONE
     Route: 065
  6. MOXIFLOXACIN [Suspect]
     Active Substance: MOXIFLOXACIN
     Indication: Postoperative care
     Dosage: 1 DOSAGE FORM, FOUR TIMES/DAY, (5 MG/ML, QID )
     Route: 065
     Dates: start: 2012
  7. DICLOFENAC SODIUM [Suspect]
     Active Substance: DICLOFENAC SODIUM
     Indication: Postoperative care
     Dosage: 1 DOSAGE FORM, 3 TIMES A DAY
     Route: 065
     Dates: start: 2012
  8. DICLOFENAC SODIUM [Suspect]
     Active Substance: DICLOFENAC SODIUM
     Dosage: 1 MILLIGRAM/MILLILITRE, 3 TIMES A DAY, (1MG/ML 1 DROP THREE TIMES DAILY FOR TWO WEEKS)
     Route: 065
  9. MOXIFLOXACIN [Suspect]
     Active Substance: MOXIFLOXACIN
     Indication: Postoperative care
     Dosage: UNK UNK, FOUR TIMES/DAY, ( (0.1ML OF 5MG/ML, 5MG/ML 1 DROP 4 TIMES DAILY FOR TEN DAYS))
     Route: 065
     Dates: start: 2012
  10. SODIUM HYALURONATE [Concomitant]
     Active Substance: HYALURONATE SODIUM
     Indication: Intraoperative care
     Route: 065

REACTIONS (1)
  - Iris hypopigmentation [Recovering/Resolving]
